FAERS Safety Report 6395384-1 (Version None)
Quarter: 2009Q4

REPORT INFORMATION
  Report Type: 
  Country: None (occurrence: None)
  Receive Date: 20091009
  Receipt Date: 20090929
  Transmission Date: 20100525
  Serious: Yes (Hospitalization)
  Sender: FDA-Public Use
  Company Number: US-ELI_LILLY_AND_COMPANY-US200909007014

PATIENT
  Sex: Female

DRUGS (8)
  1. HUMALOG [Suspect]
     Dosage: UNK, UNK
  2. GEMFIBROZIL [Concomitant]
  3. THYROXIN [Concomitant]
  4. AMITRIPTYLINE [Concomitant]
  5. LISINOPRIL [Concomitant]
  6. SERTRALINE HCL [Concomitant]
  7. LEVOTHYROXINE [Concomitant]
  8. LANTUS [Concomitant]

REACTIONS (9)
  - BLOOD GLUCOSE DECREASED [None]
  - BLOOD GLUCOSE INCREASED [None]
  - FACIAL PALSY [None]
  - FEELING ABNORMAL [None]
  - HYPOGLYCAEMIC UNCONSCIOUSNESS [None]
  - MULTIPLE ALLERGIES [None]
  - PRODUCTIVE COUGH [None]
  - SINUS DISORDER [None]
  - SPEECH DISORDER [None]
